FAERS Safety Report 6892926-4 (Version None)
Quarter: 2010Q3

REPORT INFORMATION
  Report Type: 
  Country: None (occurrence: None)
  Receive Date: 20100731
  Receipt Date: 20081110
  Transmission Date: 20110219
  Serious: No
  Sender: FDA-Public Use
  Company Number: US-PFIZER INC-2004033239

PATIENT
  Sex: Male
  Weight: 81.65 kg

DRUGS (5)
  1. NEURONTIN [Suspect]
     Indication: NERVE INJURY
     Dosage: 6 EVERY 1 DAYS
     Route: 048
     Dates: start: 19960101
  2. NEURONTIN [Suspect]
     Indication: NEUROPATHY PERIPHERAL
  3. NEURONTIN [Suspect]
     Indication: POST HERPETIC NEURALGIA
  4. METHOCARBAMOL [Suspect]
     Indication: MUSCLE RELAXANT THERAPY
     Route: 065
  5. FENTANYL [Concomitant]

REACTIONS (6)
  - ABASIA [None]
  - DRUG ADMINISTRATION ERROR [None]
  - FALL [None]
  - FEELING DRUNK [None]
  - PAIN [None]
  - UNEVALUABLE EVENT [None]
